FAERS Safety Report 24625658 (Version 1)
Quarter: 2024Q4

REPORT INFORMATION
  Report Type: Report from Study
  Country: CA (occurrence: CA)
  Receive Date: 20241115
  Receipt Date: 20241115
  Transmission Date: 20250114
  Serious: Yes (Death)
  Sender: UCB
  Company Number: CA-UCBSA-2024058538

PATIENT
  Age: 23 Month
  Sex: Female

DRUGS (1)
  1. LEVETIRACETAM [Suspect]
     Active Substance: LEVETIRACETAM
     Indication: Partial seizures
     Dosage: UNK

REACTIONS (2)
  - Status epilepticus [Fatal]
  - Therapy non-responder [Unknown]
